FAERS Safety Report 9300109 (Version 1)
Quarter: 2013Q2

REPORT INFORMATION
  Report Type: Spontaneous
  Country: US (occurrence: US)
  Receive Date: 20130521
  Receipt Date: 20130521
  Transmission Date: 20140414
  Serious: No
  Sender: FDA-Public Use
  Company Number: US-MYLANLABS-2013S1002777

PATIENT
  Age: 67 Year
  Sex: Female
  Weight: 46.72 kg

DRUGS (10)
  1. AMITRIPTYLINE HYDROCHLORIDE TABLETS, USP [Suspect]
     Indication: PAIN
     Route: 048
  2. AMITRIPTYLINE HYDROCHLORIDE TABLETS, USP [Suspect]
     Indication: INSOMNIA
     Route: 048
  3. AMITRIPTYLINE HYDROCHLORIDE TABLETS, USP [Suspect]
     Indication: ANXIETY
     Route: 048
  4. AMITRIPTYLINE HYDROCHLORIDE TABLETS, USP [Suspect]
     Indication: OFF LABEL USE
     Route: 048
  5. NORTRIPTYLINE HYDROCHLORIDE [Suspect]
     Route: 048
     Dates: start: 20130125
  6. GABAPENTIN [Concomitant]
     Indication: NEUROPATHY PERIPHERAL
  7. LYRICA [Concomitant]
     Indication: HEADACHE
     Dates: start: 201211
  8. VALACYCLOVIR HCL [Concomitant]
     Indication: ORAL HERPES
  9. ALPRAZOLAM [Concomitant]
     Indication: ANXIETY
  10. TYLENOL WITH CODEINE [Concomitant]
     Indication: PAIN

REACTIONS (5)
  - Dizziness [Recovered/Resolved]
  - Micturition frequency decreased [Not Recovered/Not Resolved]
  - Constipation [Not Recovered/Not Resolved]
  - Alopecia [Not Recovered/Not Resolved]
  - Dry mouth [Not Recovered/Not Resolved]
